FAERS Safety Report 17650782 (Version 4)
Quarter: 2020Q2

REPORT INFORMATION
  Report Type: Spontaneous
  Country: US (occurrence: US)
  Receive Date: 20200408
  Receipt Date: 20200629
  Transmission Date: 20200713
  Serious: No
  Sender: FDA-Public Use
  Company Number: US-LEXICON PHARMACEUTICALS, INC-20-1606-00262

PATIENT
  Age: 46 Year
  Sex: Female

DRUGS (6)
  1. XERMELO [Suspect]
     Active Substance: TELOTRISTAT ETHYL
     Route: 048
  2. XERMELO [Suspect]
     Active Substance: TELOTRISTAT ETHYL
     Indication: CARCINOID SYNDROME
     Dates: start: 20200305
  3. CHEMOTHERAPY [Suspect]
     Active Substance: UNSPECIFIED INGREDIENT
  4. FENTANYL. [Concomitant]
     Active Substance: FENTANYL
  5. XERMELO [Suspect]
     Active Substance: TELOTRISTAT ETHYL
  6. ZOFRAN [Concomitant]
     Active Substance: ONDANSETRON HYDROCHLORIDE

REACTIONS (4)
  - Seasonal allergy [Not Recovered/Not Resolved]
  - Malaise [Unknown]
  - Nausea [Unknown]
  - Vomiting [Unknown]
